FAERS Safety Report 11593096 (Version 1)
Quarter: 2015Q4

REPORT INFORMATION
  Report Type: Spontaneous
  Country: US (occurrence: None)
  Receive Date: 20151002
  Receipt Date: 20151002
  Transmission Date: 20160304
  Serious: Yes (Other)
  Sender: FDA-Public Use
  Company Number: None

PATIENT
  Age: 41 Year
  Sex: Female
  Weight: 109.32 kg

DRUGS (8)
  1. HAIR SKIN AND NAILS BU NATURE MADE [Concomitant]
  2. TOPAMAX [Concomitant]
     Active Substance: TOPIRAMATE
  3. VITAMIN D3 [Concomitant]
     Active Substance: CHOLECALCIFEROL
  4. RITALIN LA [Concomitant]
     Active Substance: METHYLPHENIDATE HYDROCHLORIDE
  5. XLYATAIN EYE DROPS [Concomitant]
  6. TOPAMAX [Suspect]
     Active Substance: TOPIRAMATE
     Indication: ALOPECIA
     Dosage: DATE OF USE A YEAR
     Route: 048
  7. PROZAC [Concomitant]
     Active Substance: FLUOXETINE HYDROCHLORIDE
  8. CENTURM WOMEN 50+ [Concomitant]

REACTIONS (2)
  - Depression [None]
  - Alopecia [None]

NARRATIVE: CASE EVENT DATE: 20151001
